FAERS Safety Report 20020212 (Version 1)
Quarter: 2021Q4

REPORT INFORMATION
  Report Type: Spontaneous
  Country: CN (occurrence: CN)
  Receive Date: 20211101
  Receipt Date: 20211101
  Transmission Date: 20220304
  Serious: Yes (Other)
  Sender: FDA-Public Use
  Company Number: CN-PFIZER INC-202101402713

PATIENT
  Age: 20 Day
  Sex: Male
  Weight: 3.37 kg

DRUGS (2)
  1. AZITHROMYCIN [Suspect]
     Active Substance: AZITHROMYCIN
     Indication: Anti-infective therapy
     Dosage: 34 MG, 1X/DAY
     Route: 048
     Dates: start: 20210912, end: 20210917
  2. ERYTHROMYCIN LACTOBIONATE [Suspect]
     Active Substance: ERYTHROMYCIN LACTOBIONATE
     Indication: Anti-infective therapy
     Dosage: 0.036 G, 3X/DAY
     Route: 041
     Dates: start: 20210919, end: 20210923

REACTIONS (4)
  - Hepatic function abnormal [Unknown]
  - Hepatic enzyme increased [Unknown]
  - Off label use [Unknown]
  - Product use issue [Unknown]

NARRATIVE: CASE EVENT DATE: 20210912
